FAERS Safety Report 17758569 (Version 3)
Quarter: 2022Q1

REPORT INFORMATION
  Report Type: Spontaneous
  Country: US (occurrence: None)
  Receive Date: 20200508
  Receipt Date: 20220203
  Transmission Date: 20220423
  Serious: Yes (Other)
  Sender: FDA-Public Use
  Company Number: 2020SE58422

PATIENT
  Age: 25520 Day
  Sex: Male
  Weight: 63.5 kg

DRUGS (58)
  1. NEXIUM 24HR [Suspect]
     Active Substance: ESOMEPRAZOLE MAGNESIUM
     Indication: Gastrooesophageal reflux disease
     Route: 048
     Dates: start: 198910, end: 201909
  2. NEXIUM 24HR [Suspect]
     Active Substance: ESOMEPRAZOLE MAGNESIUM
     Indication: Gastrooesophageal reflux disease
     Route: 048
     Dates: start: 198910, end: 201909
  3. NEXIUM 24HR [Suspect]
     Active Substance: ESOMEPRAZOLE MAGNESIUM
     Indication: Gastrooesophageal reflux disease
     Route: 048
     Dates: start: 2014, end: 2018
  4. NEXIUM 24HR [Suspect]
     Active Substance: ESOMEPRAZOLE MAGNESIUM
     Indication: Gastrooesophageal reflux disease
     Route: 048
     Dates: start: 2014, end: 2018
  5. NEXIUM [Suspect]
     Active Substance: ESOMEPRAZOLE MAGNESIUM
     Indication: Gastrooesophageal reflux disease
     Route: 048
     Dates: start: 2001, end: 2018
  6. NEXIUM [Suspect]
     Active Substance: ESOMEPRAZOLE MAGNESIUM
     Indication: Gastrooesophageal reflux disease
     Route: 048
     Dates: start: 2001, end: 2018
  7. PRILOSEC [Suspect]
     Active Substance: OMEPRAZOLE MAGNESIUM
     Indication: Gastrooesophageal reflux disease
     Route: 048
     Dates: start: 198910, end: 201909
  8. PRILOSEC [Suspect]
     Active Substance: OMEPRAZOLE MAGNESIUM
     Indication: Gastrooesophageal reflux disease
     Route: 048
     Dates: start: 198910, end: 201909
  9. PRILOSEC [Suspect]
     Active Substance: OMEPRAZOLE MAGNESIUM
     Indication: Gastrooesophageal reflux disease
     Route: 048
     Dates: start: 2000, end: 2018
  10. PRILOSEC [Suspect]
     Active Substance: OMEPRAZOLE MAGNESIUM
     Indication: Gastrooesophageal reflux disease
     Route: 048
     Dates: start: 2000, end: 2018
  11. PREVACID [Suspect]
     Active Substance: LANSOPRAZOLE
     Indication: Gastrooesophageal reflux disease
     Route: 065
     Dates: start: 198910, end: 201909
  12. PREVACID [Suspect]
     Active Substance: LANSOPRAZOLE
     Indication: Gastrooesophageal reflux disease
     Route: 065
     Dates: start: 198910, end: 201909
  13. PREVACID [Suspect]
     Active Substance: LANSOPRAZOLE
     Indication: Gastrooesophageal reflux disease
     Route: 065
     Dates: start: 2000, end: 2018
  14. PREVACID [Suspect]
     Active Substance: LANSOPRAZOLE
     Indication: Gastrooesophageal reflux disease
     Route: 065
     Dates: start: 2000, end: 2018
  15. LISINOPRIL [Concomitant]
     Active Substance: LISINOPRIL
     Indication: Hypertension
  16. SIMVASTATIN [Concomitant]
     Active Substance: SIMVASTATIN
     Indication: Hyperlipidaemia
  17. AMOXICILLIN [Concomitant]
     Active Substance: AMOXICILLIN
     Indication: Infection
  18. CIALIS [Concomitant]
     Active Substance: TADALAFIL
  19. CARVEDILOL [Concomitant]
     Active Substance: CARVEDILOL
  20. ARNUITY ELLIPTA [Concomitant]
     Active Substance: FLUTICASONE FUROATE
  21. RANITIDINE [Concomitant]
     Active Substance: RANITIDINE
  22. CLOPIDOGREL [Concomitant]
     Active Substance: CLOPIDOGREL BISULFATE
  23. ALBUTEROL [Concomitant]
     Active Substance: ALBUTEROL
  24. FERROUS SULFATE [Concomitant]
     Active Substance: FERROUS SULFATE
  25. DOXAZOSIN [Concomitant]
     Active Substance: DOXAZOSIN MESYLATE
  26. KETOCONAZOLE [Concomitant]
     Active Substance: KETOCONAZOLE
  27. AMLODIPINE BESYLATE [Concomitant]
     Active Substance: AMLODIPINE BESYLATE
  28. ACETAMINOPHEN\OXYCODONE HYDROCHLORIDE [Concomitant]
     Active Substance: ACETAMINOPHEN\OXYCODONE HYDROCHLORIDE
  29. NIFEDIPINE [Concomitant]
     Active Substance: NIFEDIPINE
  30. PREGABALIN [Concomitant]
     Active Substance: PREGABALIN
  31. DUTASTERIDE [Concomitant]
     Active Substance: DUTASTERIDE
  32. OXYBUTYNIN [Concomitant]
     Active Substance: OXYBUTYNIN
  33. ACETYLCYSTEINE/AMOXICILLIN [Concomitant]
  34. LACTULOSE [Concomitant]
     Active Substance: LACTULOSE
  35. ZOSTAVAX [Concomitant]
     Active Substance: VARICELLA-ZOSTER VIRUS STRAIN OKA/MERCK LIVE ANTIGEN
  36. GABAPENTIN [Concomitant]
     Active Substance: GABAPENTIN
  37. SPIRIVA [Concomitant]
     Active Substance: TIOTROPIUM BROMIDE MONOHYDRATE
  38. PROMETHAZINE [Concomitant]
     Active Substance: PROMETHAZINE HYDROCHLORIDE
  39. BACLOFEN [Concomitant]
     Active Substance: BACLOFEN
  40. CIPROFLOXACIN [Concomitant]
     Active Substance: CIPROFLOXACIN
  41. AMMONIUM LACTATE [Concomitant]
     Active Substance: AMMONIUM LACTATE
  42. LISINOPRIL AND HYDROCHLOROTHIAZIDE [Concomitant]
     Active Substance: HYDROCHLOROTHIAZIDE\LISINOPRIL
  43. SOLIFENACIN [Concomitant]
     Active Substance: SOLIFENACIN
  44. DICLOFENAC [Concomitant]
     Active Substance: DICLOFENAC
  45. LUMIGAN [Concomitant]
     Active Substance: BIMATOPROST
  46. ATORVASTATIN [Concomitant]
     Active Substance: ATORVASTATIN
  47. METOPROLOL [Concomitant]
     Active Substance: METOPROLOL
  48. CYANOCOBALAMIN/FERRIC HYDROXIDE POLYMALTOSE/FOLIC ACID [Concomitant]
  49. NIASPAN [Concomitant]
     Active Substance: NIACIN
  50. KETOCONAZOLE [Concomitant]
     Active Substance: KETOCONAZOLE
  51. AUGMENTIN [Concomitant]
     Active Substance: AMOXICILLIN\CLAVULANATE POTASSIUM
  52. ADVAIR DISKUS [Concomitant]
     Active Substance: FLUTICASONE PROPIONATE\SALMETEROL XINAFOATE
  53. ZANAFLEX [Concomitant]
     Active Substance: TIZANIDINE HYDROCHLORIDE
  54. AVODART [Concomitant]
     Active Substance: DUTASTERIDE
  55. VOLTAREN [Concomitant]
     Active Substance: DICLOFENAC SODIUM
  56. BENZONATATE [Concomitant]
     Active Substance: BENZONATATE
  57. GUAIFENESIN [Concomitant]
     Active Substance: GUAIFENESIN
  58. FERROUS SULFATE [Concomitant]
     Active Substance: FERROUS SULFATE

REACTIONS (3)
  - Chronic kidney disease [Not Recovered/Not Resolved]
  - Acute kidney injury [Unknown]
  - Hyperparathyroidism secondary [Unknown]

NARRATIVE: CASE EVENT DATE: 20130123
